FAERS Safety Report 10049447 (Version 14)
Quarter: 2015Q1

REPORT INFORMATION
  Report Type: Report from Study
  Country: PK (occurrence: PK)
  Receive Date: 20140401
  Receipt Date: 20150325
  Transmission Date: 20150720
  Serious: Yes (Death, Life-Threatening, Hospitalization)
  Sender: FDA-Public Use
  Company Number: PK-ROCHE-1368748

PATIENT
  Age: 45 Year
  Sex: Female
  Weight: 60 kg

DRUGS (9)
  1. AMOXICILLIN. [Concomitant]
     Active Substance: AMOXICILLIN
     Route: 065
     Dates: start: 20140116, end: 20140120
  2. METRONIDAZOLE. [Concomitant]
     Active Substance: METRONIDAZOLE
     Route: 065
     Dates: start: 20140320, end: 20140326
  3. N-ACETYLCYSTEINE [Concomitant]
     Active Substance: ACETYLCYSTEINE
     Route: 065
     Dates: start: 20140404, end: 20140411
  4. TAMOXIFEN [Suspect]
     Active Substance: TAMOXIFEN
     Indication: PRODUCT USED FOR UNKNOWN INDICATION
     Route: 065
     Dates: start: 20131128, end: 20140318
  5. PREGABALIN. [Concomitant]
     Active Substance: PREGABALIN
     Route: 065
     Dates: start: 20131226, end: 20140110
  6. PARACETAMOL [Concomitant]
     Active Substance: ACETAMINOPHEN
     Route: 065
     Dates: start: 20140224, end: 20140227
  7. TRASTUZUMAB [Suspect]
     Active Substance: TRASTUZUMAB
     Indication: HER-2 POSITIVE BREAST CANCER
     Dosage: LAST DOSE PRIOR TO BOTH EVENTS: 27/FEB/2014?TEMPORARILY INTERRUPTED ON 18/MAR/2014
     Route: 058
     Dates: start: 20131205, end: 20140413
  8. PYRIDOXINE [Concomitant]
     Active Substance: PYRIDOXINE
     Route: 065
     Dates: start: 20140204, end: 20140304
  9. CALCIUM CARBONATE. [Concomitant]
     Active Substance: CALCIUM CARBONATE
     Route: 065
     Dates: start: 20131128, end: 20140318

REACTIONS (2)
  - Acute hepatic failure [Fatal]
  - Hepatitis B [Not Recovered/Not Resolved]

NARRATIVE: CASE EVENT DATE: 20140313
